FAERS Safety Report 9411166 (Version 5)
Quarter: 2015Q2

REPORT INFORMATION
  Report Type: Spontaneous
  Country: GB (occurrence: GB)
  Receive Date: 20130721
  Receipt Date: 20150511
  Transmission Date: 20150821
  Serious: Yes (Other)
  Sender: FDA-Public Use
  Company Number: PHFR2013GB003705

PATIENT
  Age: 41 Year
  Sex: Male

DRUGS (3)
  1. CLOZARIL [Suspect]
     Active Substance: CLOZAPINE
     Route: 048
     Dates: start: 20130624
  2. CLOZARIL [Suspect]
     Active Substance: CLOZAPINE
     Dosage: 50 MG, QD
     Route: 048
  3. CLOZARIL [Suspect]
     Active Substance: CLOZAPINE
     Indication: SCHIZOPHRENIA
     Dosage: 50 MG
     Route: 048
     Dates: start: 201305

REACTIONS (8)
  - Nausea [Recovered/Resolved]
  - Fatigue [Recovering/Resolving]
  - Malaise [Recovered/Resolved]
  - Blood pressure decreased [Recovering/Resolving]
  - Hyperhidrosis [Recovered/Resolved]
  - Neutrophil count increased [Not Recovered/Not Resolved]
  - Urinary tract infection [Recovered/Resolved]
  - White blood cell count increased [Not Recovered/Not Resolved]

NARRATIVE: CASE EVENT DATE: 20130625
